FAERS Safety Report 6255649-0 (Version None)
Quarter: 2009Q3

REPORT INFORMATION
  Report Type: 
  Country: None (occurrence: None)
  Receive Date: 20090701
  Receipt Date: 20090618
  Transmission Date: 20100115
  Serious: No
  Sender: FDA-Public Use
  Company Number: DSU-2009-01017

PATIENT
  Age: 68 Year
  Sex: Female
  Weight: 93.441 kg

DRUGS (1)
  1. WELCHOL [Suspect]
     Indication: HYPERLIPIDAEMIA
     Dosage: 3750 MG (3750 MG, QD), PER ORAL
     Route: 048
     Dates: start: 20090505, end: 20090525

REACTIONS (2)
  - FOREIGN BODY TRAUMA [None]
  - THYROID NEOPLASM [None]
